FAERS Safety Report 14803308 (Version 1)
Quarter: 2018Q2

REPORT INFORMATION
  Report Type: Spontaneous
  Country: PL (occurrence: PL)
  Receive Date: 20180425
  Receipt Date: 20180425
  Transmission Date: 20180711
  Serious: Yes (Other)
  Sender: FDA-Public Use
  Company Number: PL-JNJFOC-20180415233

PATIENT

DRUGS (18)
  1. PARACETAMOL [Suspect]
     Active Substance: ACETAMINOPHEN
     Indication: BACK PAIN
     Route: 065
  2. IBUPROFEN. [Suspect]
     Active Substance: IBUPROFEN
     Indication: BACK PAIN
     Route: 065
  3. IBUPROFEN. [Suspect]
     Active Substance: IBUPROFEN
     Indication: DYSMENORRHOEA
     Route: 065
  4. PARACETAMOL [Suspect]
     Active Substance: ACETAMINOPHEN
     Indication: TOOTHACHE
     Route: 065
  5. METAMIZOLE [Suspect]
     Active Substance: METAMIZOLE
     Indication: TOOTHACHE
     Route: 065
  6. IBUPROFEN. [Suspect]
     Active Substance: IBUPROFEN
     Indication: ARTHRALGIA
     Route: 065
  7. IBUPROFEN. [Suspect]
     Active Substance: IBUPROFEN
     Indication: GRAFT COMPLICATION
     Route: 065
  8. PARACETAMOL [Suspect]
     Active Substance: ACETAMINOPHEN
     Indication: GRAFT COMPLICATION
     Route: 065
  9. METAMIZOLE [Suspect]
     Active Substance: METAMIZOLE
     Indication: DYSMENORRHOEA
     Route: 065
  10. METAMIZOLE [Suspect]
     Active Substance: METAMIZOLE
     Indication: GRAFT COMPLICATION
     Route: 065
  11. PARACETAMOL [Suspect]
     Active Substance: ACETAMINOPHEN
     Indication: ARTHRALGIA
     Route: 065
  12. METAMIZOLE [Suspect]
     Active Substance: METAMIZOLE
     Indication: HEADACHE
     Route: 065
  13. IBUPROFEN. [Suspect]
     Active Substance: IBUPROFEN
     Indication: TOOTHACHE
     Route: 065
  14. PARACETAMOL [Suspect]
     Active Substance: ACETAMINOPHEN
     Indication: DYSMENORRHOEA
     Route: 065
  15. PARACETAMOL [Suspect]
     Active Substance: ACETAMINOPHEN
     Indication: HEADACHE
     Route: 065
  16. METAMIZOLE [Suspect]
     Active Substance: METAMIZOLE
     Indication: ARTHRALGIA
     Route: 065
  17. METAMIZOLE [Suspect]
     Active Substance: METAMIZOLE
     Indication: BACK PAIN
     Route: 065
  18. IBUPROFEN. [Suspect]
     Active Substance: IBUPROFEN
     Indication: HEADACHE
     Route: 065

REACTIONS (18)
  - Nephropathy toxic [Unknown]
  - Gastrointestinal haemorrhage [Unknown]
  - Diarrhoea [Unknown]
  - Dyspepsia [Unknown]
  - Anaemia [Unknown]
  - Anxiety [Unknown]
  - Hepatotoxicity [Unknown]
  - Coagulopathy [Unknown]
  - Vomiting [Unknown]
  - Somnolence [Unknown]
  - Hypersensitivity [Unknown]
  - Off label use [Unknown]
  - Product use in unapproved indication [Unknown]
  - Abdominal pain upper [Unknown]
  - Bone marrow toxicity [Unknown]
  - Nausea [Unknown]
  - Gastric ulcer [Unknown]
  - Headache [Unknown]
